FAERS Safety Report 13749147 (Version 1)
Quarter: 2017Q3

REPORT INFORMATION
  Report Type: Spontaneous
  Country: SE (occurrence: SE)
  Receive Date: 20170713
  Receipt Date: 20170713
  Transmission Date: 20171127
  Serious: Yes (Hospitalization)
  Sender: FDA-Public Use
  Company Number: SE-TEVA-784903ISR

PATIENT
  Age: 63 Year
  Sex: Male

DRUGS (2)
  1. CISPLATIN. [Suspect]
     Active Substance: CISPLATIN
  2. ETOPOSIDE. [Suspect]
     Active Substance: ETOPOSIDE

REACTIONS (1)
  - Agranulocytosis [Recovered/Resolved]
